FAERS Safety Report 6182117-7 (Version None)
Quarter: 2009Q2

REPORT INFORMATION
  Report Type: 
  Country: None (occurrence: None)
  Receive Date: 20090507
  Receipt Date: 20090430
  Transmission Date: 20091009
  Serious: Yes (Other)
  Sender: FDA-Public Use
  Company Number: US-JNJFOC-20090500476

PATIENT
  Sex: Female

DRUGS (1)
  1. ORTHO TRI-CYCLEN [Suspect]
     Indication: CONTRACEPTION
     Route: 048

REACTIONS (9)
  - ABDOMINAL DISCOMFORT [None]
  - BREAST DISORDER [None]
  - BREAST PAIN [None]
  - DEPRESSION [None]
  - MIDDLE INSOMNIA [None]
  - NAUSEA [None]
  - PAROSMIA [None]
  - SENSORY DISTURBANCE [None]
  - SUICIDAL IDEATION [None]
